FAERS Safety Report 9604244 (Version 3)
Quarter: 2013Q4

REPORT INFORMATION
  Report Type: Spontaneous
  Country: US (occurrence: US)
  Receive Date: 20131008
  Receipt Date: 20131021
  Transmission Date: 20140711
  Serious: Yes (Hospitalization)
  Sender: FDA-Public Use
  Company Number: US-JNJFOC-20130916980

PATIENT
  Age: 80 Year
  Sex: Female
  Weight: 71.7 kg

DRUGS (12)
  1. XARELTO [Suspect]
     Indication: PRODUCT USED FOR UNKNOWN INDICATION
     Route: 048
     Dates: start: 20130405
  2. SINGULAIR [Concomitant]
     Route: 065
  3. KCL [Concomitant]
     Route: 065
  4. AMIODARONE [Concomitant]
     Route: 065
  5. DILTIAZEM CD [Concomitant]
     Route: 065
  6. LISINOPRIL [Concomitant]
     Route: 065
  7. CARVEDILOL [Concomitant]
     Route: 065
  8. ACETAMINOPHEN [Concomitant]
     Route: 065
  9. ADVAIR [Concomitant]
     Route: 065
  10. FUROSEMIDE [Concomitant]
     Route: 065
  11. SERTRALINE [Concomitant]
     Route: 065
  12. RANITIDINE [Concomitant]
     Route: 065

REACTIONS (3)
  - Thalamus haemorrhage [Recovering/Resolving]
  - Fall [Recovering/Resolving]
  - Subgaleal haematoma [Recovering/Resolving]
